FAERS Safety Report 4602327-7 (Version None)
Quarter: 2005Q2

REPORT INFORMATION
  Report Type: 
  Country: None (occurrence: None)
  Receive Date: 20050223
  Receipt Date: 20050126
  Transmission Date: 20051028
  Serious: No
  Sender: FDA-Public Use
  Company Number: 212038

PATIENT
  Age: 40 Year
  Sex: Male
  Weight: 105 kg

DRUGS (6)
  1. RAPTIVA [Suspect]
     Indication: PSORIASIS
     Dosage: 7 ML, SINGLE, SUBCUTANEOUS; 1 ML, 1/WEEK, SUBCUTANEOUS
     Route: 058
     Dates: start: 20050107, end: 20050107
  2. RAPTIVA [Suspect]
     Indication: PSORIASIS
     Dosage: 7 ML, SINGLE, SUBCUTANEOUS; 1 ML, 1/WEEK, SUBCUTANEOUS
     Route: 058
     Dates: start: 20050114, end: 20050114
  3. GENGRAF [Concomitant]
  4. DOVONEX OINTMENT (CALCIPOTRIENE) [Concomitant]
  5. DIPROLENE CREAM (BETAMETHASONE DIPROPIONATE) [Concomitant]
  6. TRIAMCINOLONE [Concomitant]

REACTIONS (1)
  - PSORIASIS [None]
